FAERS Safety Report 10565066 (Version 1)
Quarter: 2014Q4

REPORT INFORMATION
  Report Type: Spontaneous
  Country: US (occurrence: US)
  Receive Date: 20141105
  Receipt Date: 20141105
  Transmission Date: 20150529
  Serious: No
  Sender: FDA-Public Use
  Company Number: US-BIOGENIDEC-2014BI113618

PATIENT
  Age: 40 Year
  Sex: Female

DRUGS (12)
  1. FLAXSEED [Concomitant]
     Active Substance: FLAX SEED
  2. MULTIVITAMIN [Concomitant]
     Active Substance: VITAMINS
  3. AMANTADINE [Concomitant]
     Active Substance: AMANTADINE
  4. ASPIRIN. [Concomitant]
     Active Substance: ASPIRIN
  5. TECFIDERA [Concomitant]
     Active Substance: DIMETHYL FUMARATE
  6. SERTRALINE [Concomitant]
     Active Substance: SERTRALINE HYDROCHLORIDE
  7. TYSABRI [Suspect]
     Active Substance: NATALIZUMAB
     Indication: PRODUCT USED FOR UNKNOWN INDICATION
     Route: 042
     Dates: end: 201403
  8. AMPYRA [Concomitant]
     Active Substance: DALFAMPRIDINE
     Indication: MULTIPLE SCLEROSIS
     Route: 048
  9. GABAPENTIN. [Concomitant]
     Active Substance: GABAPENTIN
  10. TOPIRAMATE. [Concomitant]
     Active Substance: TOPIRAMATE
  11. METFORMIN [Concomitant]
     Active Substance: METFORMIN HYDROCHLORIDE
  12. NAPROSYN [Concomitant]
     Active Substance: NAPROXEN

REACTIONS (1)
  - Suicidal ideation [Unknown]
